FAERS Safety Report 17463670 (Version 1)
Quarter: 2020Q1

REPORT INFORMATION
  Report Type: Spontaneous
  Country: TW (occurrence: TW)
  Receive Date: 20200226
  Receipt Date: 20200226
  Transmission Date: 20200409
  Serious: Yes (Death, Hospitalization)
  Sender: FDA-Public Use
  Company Number: TW-AMGEN-TWNSP2020030985

PATIENT
  Age: 61 Year
  Sex: Male

DRUGS (1)
  1. ENBREL [Suspect]
     Active Substance: ETANERCEPT
     Indication: PSORIATIC ARTHROPATHY
     Dosage: 25 MILLIGRAM, 2X/WEEK (BIW)
     Route: 058
     Dates: start: 20140422, end: 20200204

REACTIONS (9)
  - Carbuncle [Fatal]
  - Pneumonia [Fatal]
  - Pleural effusion [Unknown]
  - Empyema [Fatal]
  - Septic shock [Fatal]
  - Fasciitis [Fatal]
  - Muscle abscess [Fatal]
  - Bacteraemia [Fatal]
  - Septic embolus [Fatal]

NARRATIVE: CASE EVENT DATE: 20200209
